FAERS Safety Report 4332689-X (Version None)
Quarter: 2004Q1

REPORT INFORMATION
  Report Type: 
  Country: None (occurrence: None)
  Receive Date: 20040330
  Receipt Date: 20040318
  Transmission Date: 20041129
  Serious: Yes (Life-Threatening)
  Sender: FDA-Public Use
  Company Number: 205159

PATIENT
  Age: 67 Year
  Sex: Female
  Weight: 61.7 kg

DRUGS (5)
  1. RITUXAN [Suspect]
     Indication: LYMPHOMA
     Dosage: 600 MG, 1/MONTH, INTRAVENOUS
     Route: 042
     Dates: start: 20030217, end: 20030529
  2. IFOSFAMIDE [Concomitant]
  3. MESNA [Concomitant]
  4. MITOXANTRONE [Concomitant]
  5. ETOPOSIDE [Concomitant]

REACTIONS (6)
  - ANOREXIA [None]
  - ATROPHY [None]
  - GALLBLADDER DISORDER [None]
  - HEPATITIS B SURFACE ANTIGEN POSITIVE [None]
  - HEPATITIS FULMINANT [None]
  - MALAISE [None]
